FAERS Safety Report 22893895 (Version 2)
Quarter: 2023Q4

REPORT INFORMATION
  Report Type: Spontaneous
  Country: CA (occurrence: None)
  Receive Date: 20230901
  Receipt Date: 20231228
  Transmission Date: 20240110
  Serious: No
  Sender: FDA-Public Use
  Company Number: CA-ROCHE-3415163

PATIENT
  Sex: Female

DRUGS (1)
  1. OCREVUS [Suspect]
     Active Substance: OCRELIZUMAB
     Indication: Relapsing-remitting multiple sclerosis
     Route: 065

REACTIONS (6)
  - Infusion related reaction [Recovered/Resolved]
  - Fungal infection [Unknown]
  - Depression [Unknown]
  - Anxiety [Unknown]
  - Panic attack [Unknown]
  - Dysphonia [Unknown]
